FAERS Safety Report 16329178 (Version 3)
Quarter: 2019Q3

REPORT INFORMATION
  Report Type: Spontaneous
  Country: US (occurrence: US)
  Receive Date: 20190520
  Receipt Date: 20190705
  Transmission Date: 20191004
  Serious: No
  Sender: FDA-Public Use
  Company Number: US-AMGEN INC.-USASP2019078110

PATIENT
  Sex: Female

DRUGS (4)
  1. AIMOVIG [Suspect]
     Active Substance: ERENUMAB-AOOE
     Indication: MIGRAINE
     Dosage: 70 MILLIGRAM, QMO
     Route: 065
     Dates: start: 20190416
  2. TOPAMAX [Concomitant]
     Active Substance: TOPIRAMATE
     Dosage: UNK
  3. AIMOVIG [Suspect]
     Active Substance: ERENUMAB-AOOE
     Dosage: 140 MILLIGRAM
     Route: 065
     Dates: start: 20190516
  4. ZOMIG [Concomitant]
     Active Substance: ZOLMITRIPTAN
     Dosage: UNK

REACTIONS (11)
  - Injection site extravasation [Unknown]
  - Injection site haemorrhage [Unknown]
  - Wrong technique in product usage process [Unknown]
  - Pain in extremity [Unknown]
  - Complex regional pain syndrome [Unknown]
  - Injection site bruising [Unknown]
  - Injection site erythema [Recovered/Resolved]
  - Injection site urticaria [Unknown]
  - Injection site injury [Unknown]
  - Device issue [Unknown]
  - Injection site pain [Not Recovered/Not Resolved]

NARRATIVE: CASE EVENT DATE: 20190416
